FAERS Safety Report 4561148-4 (Version None)
Quarter: 2005Q1

REPORT INFORMATION
  Report Type: 
  Country: None (occurrence: None)
  Receive Date: 20050121
  Receipt Date: 20050118
  Transmission Date: 20050727
  Serious: Yes (Hospitalization)
  Sender: FDA-Public Use
  Company Number: K200401467

PATIENT
  Age: 78 Year
  Sex: Female
  Weight: 46 kg

DRUGS (8)
  1. ALTACE [Suspect]
     Indication: ANGINA PECTORIS
     Dosage: 2.5 MG, QD, ORAL
     Route: 048
     Dates: start: 20040525, end: 20041112
  2. GELUPRANE (PARACETAMOL) CAPSULES, 500MG [Suspect]
     Dosage: 500 MG, QD, ORAL
     Route: 048
     Dates: start: 20030101
  3. KARDEGIC (ACETYLSALICYLATE LYSINE) TABLET, 75MG [Suspect]
     Indication: ANGINA PECTORIS
     Dosage: 75 MG, QD, ORAL
     Route: 048
  4. LORAZEPAM [Suspect]
     Dosage: 1 MG, QD, ORAL
     Route: 048
  5. LANSOPRAZOLE [Suspect]
     Dosage: ORAL
     Route: 048
  6. DILTIAZEM HYDROCHLORIDE [Suspect]
     Indication: ANGINA PECTORIS
     Dosage: 300 MG, QD, ORAL
     Route: 048
  7. ISOSORBIDE DINITRATE [Suspect]
  8. MODURETIC ^DU PONT^ (HYDROCHLOROTHIAZIDE, AMILORIDE HYDROCHLORIDE) [Concomitant]

REACTIONS (2)
  - LICHEN PLANUS [None]
  - THERAPY NON-RESPONDER [None]
